FAERS Safety Report 20037879 (Version 2)
Quarter: 2021Q4

REPORT INFORMATION
  Report Type: Spontaneous
  Country: US (occurrence: US)
  Receive Date: 20211105
  Receipt Date: 20211210
  Transmission Date: 20220303
  Serious: Yes (Other)
  Sender: FDA-Public Use
  Company Number: US-INCYTE CORPORATION-2021IN010241

PATIENT

DRUGS (4)
  1. JAKAFI [Suspect]
     Active Substance: RUXOLITINIB
     Indication: Essential thrombocythaemia
     Dosage: 15 MILLIGRAM, BID
     Route: 048
     Dates: start: 20211015
  2. JAKAFI [Suspect]
     Active Substance: RUXOLITINIB
     Indication: Anaemia
  3. PROCRIT [Suspect]
     Active Substance: ERYTHROPOIETIN
     Indication: Red blood cell count decreased
     Dosage: UNK
     Route: 065
  4. ASPIRIN [Concomitant]
     Active Substance: ASPIRIN
     Indication: Product used for unknown indication
     Route: 065

REACTIONS (11)
  - Full blood count abnormal [Unknown]
  - Pain in extremity [Unknown]
  - Asthenia [Unknown]
  - Arthralgia [Recovering/Resolving]
  - Bone pain [Recovering/Resolving]
  - Therapeutic response unexpected [Unknown]
  - Dyspnoea exertional [Unknown]
  - Red blood cell count decreased [Unknown]
  - Rash [Unknown]
  - Headache [Unknown]
  - Off label use [Unknown]

NARRATIVE: CASE EVENT DATE: 20211015
